FAERS Safety Report 17190084 (Version 1)
Quarter: 2019Q4

REPORT INFORMATION
  Report Type: Spontaneous
  Country: US (occurrence: US)
  Receive Date: 20191129
  Receipt Date: 20191129
  Transmission Date: 20200122
  Serious: Yes (Other)
  Sender: FDA-Public Use
  Company Number: None

PATIENT
  Age: 69 Year
  Sex: Male

DRUGS (16)
  1. ALLOPURINOL. [Concomitant]
     Active Substance: ALLOPURINOL
  2. TORSEMIDE. [Concomitant]
     Active Substance: TORSEMIDE
  3. HYDROCORTISONE TOP [Concomitant]
  4. EPLERENONE. [Concomitant]
     Active Substance: EPLERENONE
  5. FAMOTIDINE. [Concomitant]
     Active Substance: FAMOTIDINE
  6. PANTOPRAZOLE [Concomitant]
     Active Substance: PANTOPRAZOLE
  7. ATORVASTATIN [Concomitant]
     Active Substance: ATORVASTATIN
  8. TYVASO [Concomitant]
     Active Substance: TREPROSTINIL
  9. SILDENAFIL. [Concomitant]
     Active Substance: SILDENAFIL
  10. AMIODARONE [Concomitant]
     Active Substance: AMIODARONE
  11. ASPIRIN. [Concomitant]
     Active Substance: ASPIRIN
  12. OPSUMIT [Suspect]
     Active Substance: MACITENTAN
     Indication: PULMONARY ARTERIAL HYPERTENSION
     Route: 048
     Dates: start: 201608
  13. NORCO [Concomitant]
     Active Substance: ACETAMINOPHEN\HYDROCODONE BITARTRATE
  14. TRAZODONE [Concomitant]
     Active Substance: TRAZODONE HYDROCHLORIDE
  15. APIXABAN [Concomitant]
     Active Substance: APIXABAN
  16. GABAPENTIN. [Concomitant]
     Active Substance: GABAPENTIN

REACTIONS (3)
  - Arthropod bite [None]
  - Abscess [None]
  - Erythema [None]

NARRATIVE: CASE EVENT DATE: 20191110
